FAERS Safety Report 7285867-4 (Version None)
Quarter: 2011Q1

REPORT INFORMATION
  Report Type: 
  Country: None (occurrence: None)
  Receive Date: 20110210
  Receipt Date: 20110127
  Transmission Date: 20110831
  Serious: Yes (Hospitalization)
  Sender: FDA-Public Use
  Company Number: US-CELGENEUS-163-21880-10100331

PATIENT
  Sex: Male

DRUGS (13)
  1. COUMADIN [Concomitant]
     Route: 065
  2. LASIX [Concomitant]
     Route: 065
  3. LASIX [Concomitant]
     Route: 065
  4. POTASSIUM CHLORIDE [Concomitant]
     Route: 065
  5. CARVEDILOL [Concomitant]
     Route: 065
  6. NIFEDIPINE [Concomitant]
     Route: 065
  7. OXYCODONE HCL [Concomitant]
     Dosage: 5/325
     Route: 065
  8. DEXAMETHASONE [Concomitant]
     Route: 065
  9. MULTI-VITAMINS [Concomitant]
     Route: 065
  10. REVLIMID [Suspect]
     Indication: MULTIPLE MYELOMA
     Route: 048
     Dates: start: 20100901, end: 20101101
  11. MEXILETINE HYDROCHLORIDE [Concomitant]
     Route: 065
  12. COREG [Concomitant]
     Route: 065
  13. FENTANYL [Concomitant]
     Route: 062

REACTIONS (8)
  - ATRIAL FIBRILLATION [None]
  - PANCYTOPENIA [None]
  - FATIGUE [None]
  - FLUID RETENTION [None]
  - CARDIAC FAILURE CONGESTIVE [None]
  - NAUSEA [None]
  - WEIGHT DECREASED [None]
  - DECREASED APPETITE [None]
